FAERS Safety Report 13965627 (Version 2)
Quarter: 2017Q4

REPORT INFORMATION
  Report Type: Report from Study
  Country: US (occurrence: US)
  Receive Date: 20170913
  Receipt Date: 20171003
  Transmission Date: 20180320
  Serious: Yes (Death, Hospitalization, Other)
  Sender: FDA-Public Use
  Company Number: US-JNJFOC-20170722493

PATIENT
  Age: 83 Year
  Sex: Male

DRUGS (22)
  1. ULTRAM [Concomitant]
     Active Substance: TRAMADOL HYDROCHLORIDE
  2. PEPCID [Concomitant]
     Active Substance: FAMOTIDINE
  3. ALLOPURINOL. [Concomitant]
     Active Substance: ALLOPURINOL
  4. REMERON [Concomitant]
     Active Substance: MIRTAZAPINE
  5. VITAMIN D3 [Concomitant]
     Active Substance: CHOLECALCIFEROL
  6. PREVACID [Concomitant]
     Active Substance: LANSOPRAZOLE
  7. ALAVERT ALLERGY [Concomitant]
     Active Substance: LORATADINE
  8. NOVOLIN [Concomitant]
     Active Substance: INSULIN HUMAN
  9. TYLENOL [Concomitant]
     Active Substance: ACETAMINOPHEN
  10. PROCHLORPERAZINE EDISYLATE. [Concomitant]
     Active Substance: PROCHLORPERAZINE EDISYLATE
  11. VITAMIN B12 [Concomitant]
     Active Substance: CYANOCOBALAMIN
     Dosage: 1000MCG/15ML
  12. AVODART [Concomitant]
     Active Substance: DUTASTERIDE
  13. VITAMIN D [Concomitant]
     Active Substance: CHOLECALCIFEROL
     Dosage: 400 IU/ML
  14. FLOMAX [Concomitant]
     Active Substance: TAMSULOSIN HYDROCHLORIDE
  15. IMDUR [Concomitant]
     Active Substance: ISOSORBIDE MONONITRATE
  16. XANAX [Concomitant]
     Active Substance: ALPRAZOLAM
  17. SALBUTAMOL [Concomitant]
     Active Substance: ALBUTEROL
  18. IMBRUVICA [Suspect]
     Active Substance: IBRUTINIB
     Indication: NON-HODGKIN^S LYMPHOMA
     Route: 048
     Dates: start: 20160818, end: 20170703
  19. LASIX [Concomitant]
     Active Substance: FUROSEMIDE
  20. SYNTHROID [Concomitant]
     Active Substance: LEVOTHYROXINE SODIUM
  21. MECLIZINE [Concomitant]
     Active Substance: MECLIZINE HYDROCHLORIDE
  22. ELIQUIS [Concomitant]
     Active Substance: APIXABAN

REACTIONS (4)
  - Disease progression [Unknown]
  - Death [Fatal]
  - Skin infection [Not Recovered/Not Resolved]
  - Pleural effusion [Unknown]

NARRATIVE: CASE EVENT DATE: 20170606
